FAERS Safety Report 6942484-0 (Version None)
Quarter: 2010Q3

REPORT INFORMATION
  Report Type: 
  Country: None (occurrence: None)
  Receive Date: 20100826
  Receipt Date: 20100823
  Transmission Date: 20110219
  Serious: Yes (Death, Other)
  Sender: FDA-Public Use
  Company Number: US-ROXANE LABORATORIES, INC.-2010-RO-01126RO

PATIENT
  Age: 13 Year
  Sex: Male

DRUGS (9)
  1. MERCAPTOPURINE [Suspect]
     Indication: CROHN'S DISEASE
  2. PREDNISONE [Suspect]
     Indication: CROHN'S DISEASE
  3. CYCLOPHOSPHAMIDE [Suspect]
     Indication: HEPATOSPLENIC T-CELL LYMPHOMA
  4. MESALAMINE [Suspect]
     Indication: CROHN'S DISEASE
  5. PENTOSTATIN [Suspect]
     Indication: HEPATOSPLENIC T-CELL LYMPHOMA
  6. IFOSFAMIDE [Suspect]
     Indication: HEPATOSPLENIC T-CELL LYMPHOMA
  7. CARBOPLATIN [Suspect]
     Indication: HEPATOSPLENIC T-CELL LYMPHOMA
  8. ETOPOSIDE [Suspect]
     Indication: HEPATOSPLENIC T-CELL LYMPHOMA
  9. BUSULFAN [Suspect]
     Indication: HEPATOSPLENIC T-CELL LYMPHOMA

REACTIONS (4)
  - FEBRILE NEUTROPENIA [None]
  - HEPATOSPLENIC T-CELL LYMPHOMA [None]
  - PANCYTOPENIA [None]
  - TREATMENT FAILURE [None]
